FAERS Safety Report 21872326 (Version 1)
Quarter: 2023Q1

REPORT INFORMATION
  Report Type: Report from Study
  Country: US (occurrence: US)
  Receive Date: 20230117
  Receipt Date: 20230117
  Transmission Date: 20230417
  Serious: No
  Sender: FDA-Public Use
  Company Number: US-ABBVIE-22K-163-4475854-00

PATIENT
  Sex: Female

DRUGS (4)
  1. RINVOQ [Suspect]
     Active Substance: UPADACITINIB
     Indication: Rheumatoid arthritis
     Route: 048
  2. PFIZER-BIONTECH COVID-19 VACCINE [Concomitant]
     Active Substance: TOZINAMERAN
     Indication: COVID-19 immunisation
     Dosage: FIRST DOSE?FREQUENCY 1 IN ONCE
     Route: 030
     Dates: start: 20210329, end: 20210329
  3. PFIZER-BIONTECH COVID-19 VACCINE [Concomitant]
     Active Substance: TOZINAMERAN
     Indication: COVID-19 immunisation
     Dosage: SECOND DOSE?FREQUENCY 1 IN ONCE
     Route: 030
     Dates: start: 20210409, end: 20210409
  4. PFIZER-BIONTECH COVID-19 VACCINE [Concomitant]
     Active Substance: TOZINAMERAN
     Indication: COVID-19 immunisation
     Dosage: THIRD DOSE?FREQUENCY 1 IN ONCE
     Route: 030
     Dates: start: 20210818, end: 20210818

REACTIONS (9)
  - Stress [Not Recovered/Not Resolved]
  - Arthritis [Unknown]
  - Coccydynia [Unknown]
  - Feeling abnormal [Unknown]
  - Fibromyalgia [Unknown]
  - Amnesia [Recovered/Resolved]
  - Mental disorder [Not Recovered/Not Resolved]
  - Joint warmth [Unknown]
  - Arthralgia [Unknown]
